FAERS Safety Report 24689363 (Version 1)
Quarter: 2024Q4

REPORT INFORMATION
  Report Type: Spontaneous
  Country: US (occurrence: US)
  Receive Date: 20241203
  Receipt Date: 20241203
  Transmission Date: 20250114
  Serious: Yes (Other)
  Sender: BEIGENE
  Company Number: US-BEIGENE-BGN-2024-018838

PATIENT

DRUGS (3)
  1. BRUKINSA [Suspect]
     Active Substance: ZANUBRUTINIB
     Indication: B-cell lymphoma
     Dosage: 320 MILLIGRAM, DAILY
     Route: 048
     Dates: start: 2024, end: 202409
  2. BRUKINSA [Suspect]
     Active Substance: ZANUBRUTINIB
     Dosage: 160 MILLIGRAM, DAILY
     Route: 048
     Dates: start: 202409
  3. MONJUVI [Concomitant]
     Active Substance: TAFASITAMAB-CXIX
     Indication: B-cell lymphoma

REACTIONS (1)
  - Hyperglycaemia [Unknown]
